FAERS Safety Report 14897100 (Version 2)
Quarter: 2018Q2

REPORT INFORMATION
  Report Type: Spontaneous
  Country: FI (occurrence: FI)
  Receive Date: 20180515
  Receipt Date: 20180522
  Transmission Date: 20180711
  Serious: Yes (Death, Hospitalization, Other)
  Sender: FDA-Public Use
  Company Number: FI-DSJP-DSE-2018-118613

PATIENT

DRUGS (4)
  1. LIXIANA [Suspect]
     Active Substance: EDOXABAN TOSYLATE
     Indication: ATRIAL FIBRILLATION
     Dosage: 30 MG, QD
     Route: 048
     Dates: start: 20180211, end: 2018
  2. LOSARTAN AND HYDROCHLOROTHIAZIDE [Concomitant]
     Active Substance: HYDROCHLOROTHIAZIDE\LOSARTAN POTASSIUM
     Indication: HYPERTENSION
  3. BISOPROLOL [Concomitant]
     Active Substance: BISOPROLOL
     Indication: HYPERTENSION
     Dosage: 5 MG, QD
  4. CLOPIDOGREL [Concomitant]
     Active Substance: CLOPIDOGREL BISULFATE
     Indication: ANTIPLATELET THERAPY
     Dosage: UNK
     Dates: start: 2017

REACTIONS (9)
  - Death [Fatal]
  - Depressed level of consciousness [Unknown]
  - Fatigue [Unknown]
  - Confusional state [Unknown]
  - Fall [Unknown]
  - Subdural effusion [Unknown]
  - Nausea [Unknown]
  - Blood pressure decreased [Unknown]
  - Decreased appetite [Unknown]

NARRATIVE: CASE EVENT DATE: 2018
